FAERS Safety Report 8603111-X (Version None)
Quarter: 2012Q3

REPORT INFORMATION
  Report Type: 
  Country: None (occurrence: None)
  Receive Date: 20120817
  Receipt Date: 20120123
  Transmission Date: 20120928
  Serious: No
  Sender: FDA-Public Use
  Company Number: US-GLAXOSMITHKLINE-A0962782A

PATIENT
  Age: 48 Year
  Sex: Female

DRUGS (2)
  1. TAGAMET [Suspect]
     Indication: CONSTIPATION
     Route: 048
  2. UNKNOWN [Suspect]

REACTIONS (6)
  - RENAL IMPAIRMENT [None]
  - OFF LABEL USE [None]
  - DRUG INEFFECTIVE [None]
  - ABDOMINAL DISTENSION [None]
  - PANCREATIC DISORDER [None]
  - CONSTIPATION [None]
